FAERS Safety Report 4798915-8 (Version None)
Quarter: 2005Q4

REPORT INFORMATION
  Report Type: 
  Country: None (occurrence: None)
  Receive Date: 20051014
  Receipt Date: 20050930
  Transmission Date: 20060501
  Serious: Yes (Hospitalization)
  Sender: FDA-Public Use
  Company Number: US-AMGEN-US153080

PATIENT
  Sex: Male

DRUGS (5)
  1. PROCRIT [Suspect]
     Indication: ANAEMIA
  2. ZOCOR [Concomitant]
  3. PROTONIX [Concomitant]
  4. ASPIRIN [Concomitant]
  5. ADVAIR DISKUS 100/50 [Concomitant]

REACTIONS (1)
  - RESPIRATORY FAILURE [None]
